FAERS Safety Report 5310671-3 (Version None)
Quarter: 2007Q2

REPORT INFORMATION
  Report Type: 
  Country: None (occurrence: None)
  Receive Date: 20070428
  Receipt Date: 20070417
  Transmission Date: 20071010
  Serious: Yes (Other)
  Sender: FDA-Public Use
  Company Number: US-PFIZER INC-2007031275

PATIENT
  Sex: Male

DRUGS (1)
  1. LYRICA [Suspect]
     Indication: DIABETIC NEUROPATHY
     Dates: start: 20050901, end: 20070101

REACTIONS (4)
  - ASTHENIA [None]
  - FALL [None]
  - MOBILITY DECREASED [None]
  - SENSATION OF HEAVINESS [None]
